FAERS Safety Report 5368737-8 (Version None)
Quarter: 2007Q2

REPORT INFORMATION
  Report Type: 
  Country: None (occurrence: None)
  Receive Date: 20070625
  Receipt Date: 20070515
  Transmission Date: 20071010
  Serious: No
  Sender: FDA-Public Use
  Company Number: US-BRISTOL-MYERS SQUIBB COMPANY-13780358

PATIENT
  Sex: Female

DRUGS (7)
  1. ORENCIA [Suspect]
     Indication: RHEUMATOID ARTHRITIS
  2. ATENOLOL [Concomitant]
  3. DETROL [Concomitant]
  4. DIOVAN [Concomitant]
  5. CELEBREX [Concomitant]
  6. PREDNISONE TAB [Concomitant]
  7. ACIPHEX [Concomitant]

REACTIONS (1)
  - BLOOD PRESSURE INCREASED [None]
